FAERS Safety Report 9046211 (Version 1)
Quarter: 2013Q1

REPORT INFORMATION
  Report Type: Spontaneous
  Country: FR (occurrence: FR)
  Receive Date: 20130201
  Receipt Date: 20130201
  Transmission Date: 20140127
  Serious: Yes (Hospitalization, Other)
  Sender: FDA-Public Use
  Company Number: PHHY2013FR006386

PATIENT
  Sex: Male

DRUGS (3)
  1. CERTICAN [Suspect]
     Indication: LIVER TRANSPLANT
  2. RADIO-THERAPY [Concomitant]
     Indication: TONSIL CANCER
     Dosage: 26 GY, UNK
  3. FOLFOX [Concomitant]
     Indication: TONSIL CANCER
     Dosage: UNK UKN, UNK

REACTIONS (9)
  - Sialometaplasia [Not Recovered/Not Resolved]
  - Nasal sinus cancer [Unknown]
  - Nasal ulcer [Unknown]
  - Throat cancer [Unknown]
  - Oral pain [Unknown]
  - Palatal disorder [Unknown]
  - Ischaemia [Unknown]
  - Nasal necrosis [Unknown]
  - Ear neoplasm [Unknown]
